FAERS Safety Report 4823569-1 (Version None)
Quarter: 2005Q4

REPORT INFORMATION
  Report Type: 
  Country: None (occurrence: None)
  Receive Date: 20051109
  Receipt Date: 20051026
  Transmission Date: 20060501
  Serious: Yes (Hospitalization)
  Sender: FDA-Public Use
  Company Number: BE-BRISTOL-MYERS SQUIBB COMPANY-13171178

PATIENT
  Age: 80 Year
  Sex: Female
  Weight: 55 kg

DRUGS (19)
  1. ATAZANAVIR [Suspect]
     Indication: HIV INFECTION
     Route: 048
     Dates: start: 20040209
  2. RITONAVIR [Concomitant]
     Route: 048
  3. ABACAVIR SULFATE [Concomitant]
     Route: 048
  4. LAMIVUDINE [Concomitant]
     Route: 048
  5. DEXTROSE 5% [Concomitant]
  6. DARBEPOETIN ALFA [Concomitant]
     Route: 058
  7. ENOXAPARIN SODIUM [Concomitant]
     Dosage: 20 MG/0.2 MI
     Route: 058
  8. ISOSORBIDE DINITRATE [Concomitant]
     Route: 048
  9. PROTHIPENDYL HCL [Concomitant]
     Route: 048
  10. BISOPROLOL [Concomitant]
     Route: 048
  11. METHYLPREDNISOLONE [Concomitant]
     Route: 048
  12. MORPHINE [Concomitant]
     Route: 048
  13. OMEPRAZOLE [Concomitant]
     Route: 048
  14. ACENOCOUMAROL [Concomitant]
     Route: 048
  15. ESCITALOPRAM OXALATE [Concomitant]
     Route: 048
  16. LORAZEPAM [Concomitant]
     Route: 048
  17. LISINOPRIL [Concomitant]
     Route: 048
  18. ACYCLOVIR [Concomitant]
     Route: 048
  19. SULFADIAZINE [Concomitant]
     Route: 061

REACTIONS (3)
  - MALAISE [None]
  - POLLAKIURIA [None]
  - SYNCOPE [None]
